FAERS Safety Report 18986272 (Version 6)
Quarter: 2021Q4

REPORT INFORMATION
  Report Type: Spontaneous
  Country: US (occurrence: US)
  Receive Date: 20210309
  Receipt Date: 20211019
  Transmission Date: 20220303
  Serious: Yes (Hospitalization, Other)
  Sender: FDA-Public Use
  Company Number: US-SA-SAC20210227000009

PATIENT
  Age: 59 Year
  Sex: Female

DRUGS (4)
  1. CAPRELSA [Suspect]
     Active Substance: VANDETANIB
     Indication: Thyroid cancer
     Dosage: 300 MG, QD (DOSAGE INCREASED)
     Route: 048
  2. CAPRELSA [Suspect]
     Active Substance: VANDETANIB
     Indication: Metastasis
     Dosage: 300 MG, QD
     Route: 048
     Dates: start: 20191122
  3. CAPRELSA [Suspect]
     Active Substance: VANDETANIB
     Dosage: 200 MG, QD
     Route: 048
     Dates: start: 20191122
  4. CAPRELSA [Suspect]
     Active Substance: VANDETANIB
     Dosage: 100 MG, QD
     Route: 048
     Dates: start: 20191122

REACTIONS (3)
  - Pain [Unknown]
  - Electrocardiogram QT prolonged [Unknown]
  - Cardiac disorder [Unknown]
